FAERS Safety Report 22243048 (Version 1)
Quarter: 2023Q2

REPORT INFORMATION
  Report Type: Spontaneous
  Country: US (occurrence: US)
  Receive Date: 20230424
  Receipt Date: 20230424
  Transmission Date: 20230722
  Serious: Yes (Other)
  Sender: FDA-Public Use
  Company Number: US-MYLANLABS-2023M1042476

PATIENT
  Age: 75 Year
  Sex: Male

DRUGS (4)
  1. POMALIDOMIDE [Suspect]
     Active Substance: POMALIDOMIDE
     Indication: Plasma cell myeloma
     Dosage: UNK, TWO WEEKS OF TREATMENT FOLLOWED BY 2 WEEKS OFF
     Route: 065
  2. POMALIDOMIDE [Suspect]
     Active Substance: POMALIDOMIDE
     Dosage: UNK, (RE-INITIATED)
     Route: 065
  3. DEXAMETHASONE [Concomitant]
     Active Substance: DEXAMETHASONE
     Indication: Plasma cell myeloma
     Dosage: UNK, TWO WEEKS OF TREATMENT FOLLOWED BY 2 WEEKS OFF
     Route: 065
  4. DEXAMETHASONE [Concomitant]
     Active Substance: DEXAMETHASONE
     Dosage: UNK (RE-INITIATED)
     Route: 065

REACTIONS (2)
  - Migraine with aura [Recovering/Resolving]
  - Withdrawal syndrome [Recovering/Resolving]
